FAERS Safety Report 25375144 (Version 1)
Quarter: 2025Q2

REPORT INFORMATION
  Report Type: Report from Study
  Country: DE (occurrence: DE)
  Receive Date: 20250529
  Receipt Date: 20250529
  Transmission Date: 20250717
  Serious: Yes (Other)
  Sender: AMGEN
  Company Number: DE-AMGEN-DEUNI2025103739

PATIENT
  Age: 81 Year
  Sex: Female

DRUGS (1)
  1. TEPROTUMUMAB [Suspect]
     Active Substance: TEPROTUMUMAB
     Indication: Inflammation
     Dosage: 10 MILLIGRAM/KILOGRAM, QD (1X)/ 10 MILLIGRAM/KILOGRAM=1000MG
     Route: 040
     Dates: start: 20250520

REACTIONS (1)
  - Lymphangitis [Unknown]

NARRATIVE: CASE EVENT DATE: 20250523
